FAERS Safety Report 21604140 (Version 3)
Quarter: 2023Q1

REPORT INFORMATION
  Report Type: Spontaneous
  Country: ES (occurrence: ES)
  Receive Date: 20221116
  Receipt Date: 20230207
  Transmission Date: 20230417
  Serious: Yes (Other)
  Sender: FDA-Public Use
  Company Number: ES-SAMSUNG BIOEPIS-SB-2022-23281

PATIENT
  Age: 36 Year
  Sex: Male

DRUGS (3)
  1. ADALIMUMAB [Suspect]
     Active Substance: ADALIMUMAB
     Indication: Crohn^s disease
     Dosage: 40 MILLIGRAM, Q2W, FOR 3 YEARS (36 MONTHS)
     Route: 058
  2. ADALIMUMAB [Suspect]
     Active Substance: ADALIMUMAB
     Dosage: UNK
     Route: 058
  3. METHOTREXATE [Concomitant]
     Active Substance: METHOTREXATE
     Indication: Crohn^s disease
     Dosage: UNK
     Route: 065

REACTIONS (8)
  - Crohn^s disease [Unknown]
  - Retinal detachment [Unknown]
  - Retinal haemorrhage [Unknown]
  - Tuberculosis of eye [Unknown]
  - Optic neuritis [Unknown]
  - Pulmonary tuberculosis [Recovering/Resolving]
  - Uveitis [Recovering/Resolving]
  - Tuberculosis [Unknown]
